FAERS Safety Report 16325358 (Version 1)
Quarter: 2019Q2

REPORT INFORMATION
  Report Type: Spontaneous
  Country: CN (occurrence: CN)
  Receive Date: 20190517
  Receipt Date: 20190517
  Transmission Date: 20190711
  Serious: Yes (Hospitalization)
  Sender: FDA-Public Use
  Company Number: CN-FRESENIUS KABI-FK201905516

PATIENT
  Age: 29 Year
  Sex: Female

DRUGS (3)
  1. LIPOVENOES MCT 20% [Suspect]
     Active Substance: EGG PHOSPHOLIPIDS\GLYCERIN\MEDIUM-CHAIN TRIGLYCERIDES\SOYBEAN OIL
     Indication: NUTRITIONAL SUPPLEMENTATION
     Dosage: 250MLQD
     Route: 041
     Dates: start: 20190426, end: 20190428
  2. CEFOPERAZONE SODIUM/SULBACTAM SODIUM [Concomitant]
     Indication: ANTIINFLAMMATORY THERAPY
     Dosage: 3G BID
     Route: 041
     Dates: start: 20190424, end: 20190429
  3. SODIUM CHLORIDE/ORNIDAZOLE [Concomitant]
     Indication: ANTIINFLAMMATORY THERAPY
     Dosage: 0.5G BID
     Route: 041
     Dates: start: 20190424, end: 20190429

REACTIONS (2)
  - Pyrexia [Recovering/Resolving]
  - Chills [Recovering/Resolving]

NARRATIVE: CASE EVENT DATE: 20190429
